FAERS Safety Report 16838960 (Version 1)
Quarter: 2019Q3

REPORT INFORMATION
  Report Type: Spontaneous
  Country: NO (occurrence: NO)
  Receive Date: 20190923
  Receipt Date: 20190923
  Transmission Date: 20191005
  Serious: Yes (Hospitalization)
  Sender: FDA-Public Use
  Company Number: NO-ELI_LILLY_AND_COMPANY-NO201909007208

PATIENT
  Age: 56 Year
  Sex: Female

DRUGS (1)
  1. ZYPREXA [Suspect]
     Active Substance: OLANZAPINE
     Indication: SCHIZOAFFECTIVE DISORDER
     Dosage: 10 MG, BID
     Route: 048
     Dates: start: 2004

REACTIONS (1)
  - Vasculitic rash [Recovering/Resolving]

NARRATIVE: CASE EVENT DATE: 20190502
